FAERS Safety Report 9375081 (Version 1)
Quarter: 2013Q2

REPORT INFORMATION
  Report Type: Spontaneous
  Country: FR (occurrence: FR)
  Receive Date: 20130628
  Receipt Date: 20130628
  Transmission Date: 20140414
  Serious: Yes (Other)
  Sender: FDA-Public Use
  Company Number: FR-JNJFOC-20130615438

PATIENT
  Age: 18 Year
  Sex: Male

DRUGS (1)
  1. REMICADE [Suspect]
     Indication: CROHN^S DISEASE
     Dosage: FOR 5 YEARS
     Route: 042
     Dates: start: 2008

REACTIONS (4)
  - Inflammation [Unknown]
  - Blood urea increased [Unknown]
  - Systemic lupus erythematosus [Unknown]
  - Weight decreased [Unknown]
